FAERS Safety Report 15664676 (Version 1)
Quarter: 2018Q4

REPORT INFORMATION
  Report Type: Other
  Country: GB (occurrence: GR)
  Receive Date: 20181128
  Receipt Date: 20181128
  Transmission Date: 20190205
  Serious: Yes (Hospitalization, Other)
  Sender: FDA-Public Use
  Company Number: GB-DIMETHAID UK LIMITED-DIM-002865-2018

PATIENT
  Age: 72 Year
  Sex: Male

DRUGS (4)
  1. IRBESARTAN. [Suspect]
     Active Substance: IRBESARTAN
     Indication: CARDIAC FAILURE
     Dosage: 300 MG, DAILY
     Route: 065
  2. CARVEDILOL. [Suspect]
     Active Substance: CARVEDILOL
     Indication: CARDIAC FAILURE
     Dosage: 12.5 MG, DAILY
     Route: 065
  3. DICLOFENAC SODIUM. [Suspect]
     Active Substance: DICLOFENAC SODIUM
     Indication: CARDIAC FAILURE
     Dosage: UNK
     Route: 065
  4. FUROSEMIDE/AMILORIDE [Suspect]
     Active Substance: AMILORIDE HYDROCHLORIDE\FUROSEMIDE
     Indication: CARDIAC FAILURE
     Dosage: 2 DF, DAILY
     Route: 065

REACTIONS (3)
  - Muscular weakness [Unknown]
  - Product use in unapproved indication [Unknown]
  - Hyperkalaemia [Unknown]
